FAERS Safety Report 25419315 (Version 1)
Quarter: 2025Q2

REPORT INFORMATION
  Report Type: Spontaneous
  Country: RO (occurrence: RO)
  Receive Date: 20250610
  Receipt Date: 20250610
  Transmission Date: 20250717
  Serious: Yes (Other)
  Sender: PFIZER
  Company Number: RO-PFIZER INC-PV202500068895

PATIENT
  Age: 62 Year
  Sex: Female

DRUGS (2)
  1. PALBOCICLIB [Suspect]
     Active Substance: PALBOCICLIB
     Indication: Breast cancer
     Dosage: 125 MG, 1X/DAY, D1-D21
     Dates: start: 20240202
  2. ANASTROZOLE [Suspect]
     Active Substance: ANASTROZOLE
     Dosage: 1 MG, 1X/DAY, D1-D28
     Dates: start: 20240202

REACTIONS (1)
  - Hepatic lesion [Unknown]
